FAERS Safety Report 5051892-7 (Version None)
Quarter: 2006Q3

REPORT INFORMATION
  Report Type: 
  Country: None (occurrence: None)
  Receive Date: 20060711
  Receipt Date: 20060616
  Transmission Date: 20061208
  Serious: Yes (Death)
  Sender: FDA-Public Use
  Company Number: US200606003879

PATIENT
  Age: 28 Year
  Sex: Female

DRUGS (1)
  1. XIGRIS [Suspect]
     Indication: ACUTE RESPIRATORY DISTRESS SYNDROME
     Dosage: INTRAVENOUS
     Route: 042

REACTIONS (2)
  - PLATELET COUNT DECREASED [None]
  - PULMONARY HAEMORRHAGE [None]
